FAERS Safety Report 13444575 (Version 3)
Quarter: 2017Q2

REPORT INFORMATION
  Report Type: Report from Study
  Country: JP (occurrence: JP)
  Receive Date: 20170414
  Receipt Date: 20170425
  Transmission Date: 20170830
  Serious: Yes (Death, Hospitalization)
  Sender: FDA-Public Use
  Company Number: JP-ASTRAZENECA-2017SE37614

PATIENT
  Age: 25396 Day
  Sex: Female
  Weight: 42.6 kg

DRUGS (5)
  1. FLUTIFORM AEROSOL [Concomitant]
     Indication: COUGH
     Dosage: 4 INHALATIONS/TWICE DAILY
     Route: 055
     Dates: start: 20170223
  2. TAGRISSO [Suspect]
     Active Substance: OSIMERTINIB
     Indication: NON-SMALL CELL LUNG CANCER
     Route: 048
     Dates: start: 20170327, end: 20170404
  3. KARY UNI [Concomitant]
     Active Substance: PIRENOXINE
     Indication: CATARACT
     Dosage: 4 TIMES DAILY
     Route: 047
     Dates: start: 20170127
  4. AMLODIPINE [Concomitant]
     Active Substance: AMLODIPINE BESYLATE
     Indication: HYPERTENSION
     Route: 048
     Dates: start: 20170116, end: 20170405
  5. LACRIMIN [Concomitant]
     Active Substance: BENOXINATE HYDROCHLORIDE
     Indication: CATARACT
     Dosage: 4 TIMES DAILY
     Route: 047
     Dates: start: 20170127

REACTIONS (2)
  - Lung neoplasm malignant [Fatal]
  - Disseminated intravascular coagulation [Not Recovered/Not Resolved]

NARRATIVE: CASE EVENT DATE: 20170405
